FAERS Safety Report 4922060-1 (Version None)
Quarter: 2006Q1

REPORT INFORMATION
  Report Type: 
  Country: None (occurrence: None)
  Receive Date: 20060222
  Receipt Date: 20060222
  Transmission Date: 20060701
  Serious: Yes (Hospitalization)
  Sender: FDA-Public Use
  Company Number: None

PATIENT
  Age: 87 Year
  Sex: Female
  Weight: 48.9885 kg

DRUGS (8)
  1. WARFARIN [Suspect]
     Dosage: 2 MG M-W-F-SU  4 MG T, TH, SAT
  2. LEVAQUIN [Suspect]
     Indication: URINARY TRACT INFECTION
     Dosage: 250MG DAILY
  3. LANOXIN [Concomitant]
  4. PRAVACHOL [Concomitant]
  5. LASIX [Concomitant]
  6. SPIRONOLACTONE [Concomitant]
  7. COREG [Concomitant]
  8. ENALAPRIL MALEATE [Concomitant]

REACTIONS (5)
  - COLON CANCER METASTATIC [None]
  - EPISTAXIS [None]
  - INTERNATIONAL NORMALISED RATIO ABNORMAL [None]
  - PROTHROMBIN TIME PROLONGED [None]
  - URINARY TRACT INFECTION [None]
